FAERS Safety Report 17814042 (Version 1)
Quarter: 2020Q2

REPORT INFORMATION
  Report Type: Spontaneous
  Country: US (occurrence: US)
  Receive Date: 20200521
  Receipt Date: 20200521
  Transmission Date: 20200714
  Serious: No
  Sender: FDA-Public Use
  Company Number: US-JNJFOC-20200427319

PATIENT
  Sex: Female

DRUGS (2)
  1. WOMENS ROGAINE [Suspect]
     Active Substance: MINOXIDIL
     Indication: ALOPECIA
     Dosage: AS PER PACKAGE DIRECTIONS
     Route: 061
     Dates: start: 201906, end: 201912
  2. WOMENS ROGAINE [Suspect]
     Active Substance: MINOXIDIL
     Dosage: AS PER PACKAGE DIRECTIONS
     Route: 061
     Dates: start: 202003

REACTIONS (2)
  - Inappropriate schedule of product administration [Unknown]
  - Underdose [Unknown]
